FAERS Safety Report 6258619-1 (Version None)
Quarter: 2009Q3

REPORT INFORMATION
  Report Type: 
  Country: None (occurrence: None)
  Receive Date: 20090707
  Receipt Date: 20090701
  Transmission Date: 20100115
  Serious: No
  Sender: FDA-Public Use
  Company Number: KR-JNJFOC-20090701148

PATIENT
  Age: 9 Decade
  Sex: Female

DRUGS (2)
  1. DURAGESIC-100 [Suspect]
     Dosage: HALF PATCH OF 12.5 UG/HR
     Route: 062
  2. DURAGESIC-100 [Suspect]
     Indication: SPINAL COLUMN STENOSIS
     Dosage: HALF PATCH APPLIED
     Route: 062

REACTIONS (3)
  - DRUG ADMINISTRATION ERROR [None]
  - NAUSEA [None]
  - VOMITING [None]
